FAERS Safety Report 21240066 (Version 1)
Quarter: 2022Q3

REPORT INFORMATION
  Report Type: Spontaneous
  Country: US (occurrence: None)
  Receive Date: 20220821
  Receipt Date: 20220821
  Transmission Date: 20221027
  Serious: Yes (Life-Threatening, Hospitalization)
  Sender: FDA-Public Use
  Company Number: None

PATIENT
  Age: 39 Year
  Sex: Male

DRUGS (1)
  1. LITHIUM [Suspect]
     Active Substance: LITHIUM

REACTIONS (8)
  - Antipsychotic drug level increased [None]
  - Acute kidney injury [None]
  - Vomiting [None]
  - Diarrhoea [None]
  - Muscle twitching [None]
  - Bundle branch block right [None]
  - Haemodialysis [None]
  - Electrocardiogram QT prolonged [None]

NARRATIVE: CASE EVENT DATE: 20220401
